FAERS Safety Report 6011848-4 (Version None)
Quarter: 2008Q4

REPORT INFORMATION
  Report Type: 
  Country: None (occurrence: None)
  Receive Date: 20081218
  Receipt Date: 20081215
  Transmission Date: 20090506
  Serious: Yes (Death)
  Sender: FDA-Public Use
  Company Number: JP-SANOFI-SYNTHELABO-F01200801891

PATIENT
  Sex: Male
  Weight: 58.6 kg

DRUGS (16)
  1. MEXITIL [Concomitant]
     Route: 048
     Dates: end: 20080724
  2. RENIVACE [Concomitant]
     Dosage: 2.5 MG
     Route: 065
     Dates: end: 20081115
  3. HERBESSER [Concomitant]
     Dosage: 100 MG
     Route: 048
     Dates: end: 20081115
  4. MEVALOTIN [Concomitant]
     Route: 048
     Dates: end: 20081115
  5. NITOROL [Concomitant]
     Dosage: 20 MG
     Route: 048
     Dates: end: 20081115
  6. ALDACTONE [Concomitant]
     Dosage: 25 MG
     Route: 048
     Dates: end: 20081115
  7. LASIX [Concomitant]
     Dosage: 40 MG
     Route: 048
     Dates: end: 20081115
  8. DIGOSIN [Concomitant]
     Dosage: 0.125 MG
     Route: 048
     Dates: end: 20081115
  9. SIGMART [Concomitant]
     Route: 048
     Dates: end: 20081115
  10. TAKEPRON [Concomitant]
     Dosage: 15 MG
     Route: 048
     Dates: end: 20081115
  11. HEPARIN [Concomitant]
     Indication: ANGINA UNSTABLE
     Dosage: 2000 IU
     Route: 042
     Dates: start: 20080715, end: 20080715
  12. HEPARIN [Concomitant]
     Dosage: 4000 IU
     Route: 042
     Dates: start: 20080715, end: 20080715
  13. HEPARIN [Concomitant]
     Dosage: 6000 IU
     Route: 042
     Dates: start: 20080722, end: 20080722
  14. ASPIRIN [Concomitant]
     Indication: ANGINA UNSTABLE
     Dosage: 100 MG
     Route: 048
     Dates: start: 20080714, end: 20081115
  15. CLOPIDOGREL [Suspect]
     Indication: ACUTE CORONARY SYNDROME
     Dosage: STARTING DOSE 300 MG
     Route: 048
     Dates: start: 20080715, end: 20080715
  16. CLOPIDOGREL [Suspect]
     Dosage: MAINTENANCE DOSE
     Route: 048
     Dates: start: 20080716, end: 20081115

REACTIONS (1)
  - SUDDEN DEATH [None]
